FAERS Safety Report 14973171 (Version 1)
Quarter: 2018Q2

REPORT INFORMATION
  Report Type: Spontaneous
  Country: CN (occurrence: CN)
  Receive Date: 20180605
  Receipt Date: 20180605
  Transmission Date: 20180711
  Serious: Yes (Other)
  Sender: FDA-Public Use
  Company Number: PHHY2018CN011902

PATIENT

DRUGS (1)
  1. TACROLIMUS. [Suspect]
     Active Substance: TACROLIMUS
     Indication: IGA NEPHROPATHY
     Dosage: 1 MG, QD (DIVIDED INTO 2 DOSES AT 12-HOUR INTERVALS)
     Route: 065

REACTIONS (2)
  - Glomerular filtration rate decreased [Unknown]
  - Product use in unapproved indication [Unknown]
